FAERS Safety Report 20967739 (Version 1)
Quarter: 2022Q2

REPORT INFORMATION
  Report Type: Spontaneous
  Country: US (occurrence: US)
  Receive Date: 20220616
  Receipt Date: 20220616
  Transmission Date: 20220721
  Serious: Yes (Other)
  Sender: FDA-Public Use
  Company Number: US-GW PHARMA-2022-US-019675

PATIENT
  Age: 9 Year
  Sex: Male
  Weight: 34.8 kg

DRUGS (1)
  1. EPIDIOLEX [Suspect]
     Active Substance: CANNABIDIOL
     Indication: Product used for unknown indication
     Dosage: UNK
     Dates: end: 20220308

REACTIONS (2)
  - Intentional dose omission [Unknown]
  - Seizure [Unknown]

NARRATIVE: CASE EVENT DATE: 20220308
